FAERS Safety Report 16983097 (Version 1)
Quarter: 2019Q4

REPORT INFORMATION
  Report Type: Spontaneous
  Country: US (occurrence: US)
  Receive Date: 20191030
  Receipt Date: 20191030
  Transmission Date: 20200122
  Serious: No
  Sender: FDA-Public Use
  Company Number: None

PATIENT
  Age: 57 Year
  Sex: Female
  Weight: 98.1 kg

DRUGS (8)
  1. MONTELAKAST [Concomitant]
  2. MORINGA [Concomitant]
  3. HUMIRA [Suspect]
     Active Substance: ADALIMUMAB
     Indication: RHEUMATOID ARTHRITIS
     Dosage: ?          QUANTITY:1 INJECTION(S);OTHER FREQUENCY:EVERY 2 WEEKS;?
     Route: 058
     Dates: start: 20190526, end: 20191030
  4. BLACK COHOSH [Concomitant]
     Active Substance: BLACK COHOSH
  5. VITAMIN D [Concomitant]
     Active Substance: VITAMIN D NOS
  6. VENTOLIN [Concomitant]
     Active Substance: ALBUTEROL SULFATE
  7. SYMBICORT [Concomitant]
     Active Substance: BUDESONIDE\FORMOTEROL FUMARATE DIHYDRATE
  8. THEOPHYLINE [Concomitant]
     Active Substance: THEOPHYLLINE ANHYDROUS

REACTIONS (4)
  - Dizziness [None]
  - Feeling hot [None]
  - Peripheral coldness [None]
  - Disorientation [None]

NARRATIVE: CASE EVENT DATE: 20191029
